FAERS Safety Report 9367517 (Version 1)
Quarter: 2013Q2

REPORT INFORMATION
  Report Type: Spontaneous
  Country: US (occurrence: US)
  Receive Date: 20130625
  Receipt Date: 20130625
  Transmission Date: 20140414
  Serious: No
  Sender: FDA-Public Use
  Company Number: US-ASTELLAS-2012US007688

PATIENT
  Sex: Female
  Weight: 74 kg

DRUGS (2)
  1. VESICARE [Suspect]
     Indication: PRODUCT USED FOR UNKNOWN INDICATION
     Dosage: 10 MG, UNKNOWN/D
     Route: 048
  2. ESTROGEN NOS W/METHYLTESTOSTERONE [Concomitant]
     Indication: HYSTERECTOMY
     Dosage: 5 MG, UID/QD
     Route: 065

REACTIONS (2)
  - Dry mouth [Recovered/Resolved]
  - Constipation [Recovered/Resolved]
